FAERS Safety Report 9929448 (Version 1)
Quarter: 2014Q1

REPORT INFORMATION
  Report Type: Spontaneous
  Country: US (occurrence: US)
  Receive Date: 20140227
  Receipt Date: 20140227
  Transmission Date: 20141002
  Serious: No
  Sender: FDA-Public Use
  Company Number: US-PFIZER INC-2014057709

PATIENT
  Sex: Female
  Weight: 54.42 kg

DRUGS (1)
  1. SERTRALINE HCL [Suspect]
     Indication: OBSESSIVE-COMPULSIVE DISORDER
     Dosage: 25 MG, 1X/DAY
     Route: 048
     Dates: start: 200707, end: 2008

REACTIONS (4)
  - Anxiety [Unknown]
  - Disorientation [Unknown]
  - Fear [Unknown]
  - Insomnia [Unknown]
